FAERS Safety Report 7435146-7 (Version None)
Quarter: 2011Q2

REPORT INFORMATION
  Report Type: 
  Country: None (occurrence: None)
  Receive Date: 20110425
  Receipt Date: 20110419
  Transmission Date: 20111010
  Serious: Yes (Death, Other)
  Sender: FDA-Public Use
  Company Number: PHHY2010AT59276

PATIENT
  Age: 73 Year
  Sex: Female
  Weight: 75 kg

DRUGS (3)
  1. TASIGNA [Suspect]
     Indication: CHRONIC MYELOID LEUKAEMIA
     Dosage: 400 MG, BID
     Route: 048
     Dates: start: 20090612
  2. ASPIRIN [Concomitant]
     Dates: start: 20090301
  3. CITALOPRAM [Concomitant]

REACTIONS (8)
  - CONFUSIONAL STATE [None]
  - BRONCHIAL HYPERREACTIVITY [None]
  - MYOCARDIAL INFARCTION [None]
  - CEREBRAL DISORDER [None]
  - VERTIGO [None]
  - CORONARY ARTERY DISEASE [None]
  - DROWNING [None]
  - OBSTRUCTIVE AIRWAYS DISORDER [None]
